FAERS Safety Report 8619271-0 (Version None)
Quarter: 2012Q3

REPORT INFORMATION
  Report Type: 
  Country: None (occurrence: None)
  Receive Date: 20120824
  Receipt Date: 20120816
  Transmission Date: 20120928
  Serious: Yes (Life-Threatening, Hospitalization, Other)
  Sender: FDA-Public Use
  Company Number: US-JNJFOC-20120807877

PATIENT
  Sex: Female

DRUGS (1)
  1. ORTHO EVRA [Suspect]
     Indication: CONTRACEPTION
     Route: 062
     Dates: start: 20081209, end: 20100222

REACTIONS (7)
  - PLEURAL EFFUSION [None]
  - PULMONARY EMBOLISM [None]
  - IRON DEFICIENCY ANAEMIA [None]
  - MIGRAINE [None]
  - ATELECTASIS [None]
  - PNEUMONIA [None]
  - ASTHMA [None]
